FAERS Safety Report 13318837 (Version 4)
Quarter: 2017Q2

REPORT INFORMATION
  Report Type: Report from Study
  Country: TW (occurrence: TW)
  Receive Date: 20170310
  Receipt Date: 20170413
  Transmission Date: 20170830
  Serious: Yes (Hospitalization)
  Sender: FDA-Public Use
  Company Number: TW-JNJFOC-20170302711

PATIENT
  Age: 32 Year
  Sex: Male
  Weight: 109 kg

DRUGS (15)
  1. LEVOCETIRIZINE [Concomitant]
     Active Substance: LEVOCETIRIZINE
     Indication: PRURITUS
     Route: 048
  2. SILYMARIN [Concomitant]
     Active Substance: MILK THISTLE
     Indication: LIVER DISORDER
     Route: 065
     Dates: start: 20160824
  3. ARCOXIA [Concomitant]
     Active Substance: ETORICOXIB
     Route: 065
     Dates: start: 20170304
  4. NALBUPHINE [Concomitant]
     Active Substance: NALBUPHINE
     Dosage: EVERY 6 HOURS
     Route: 065
     Dates: start: 20170304
  5. STELARA [Suspect]
     Active Substance: USTEKINUMAB
     Indication: PSORIASIS
     Route: 058
     Dates: start: 20160422, end: 20170308
  6. COLCHICINE. [Concomitant]
     Active Substance: COLCHICINE
     Indication: GOUT
     Route: 048
     Dates: start: 20160111
  7. CEFADROXIL. [Concomitant]
     Active Substance: CEFADROXIL
     Route: 065
     Dates: start: 20170302
  8. CICLOSPORIN [Concomitant]
     Active Substance: CYCLOSPORINE
     Indication: PSORIASIS
     Route: 048
     Dates: start: 20150522
  9. BAIN [Concomitant]
     Indication: PAIN
     Route: 065
     Dates: start: 20170302
  10. CEFAZOLIN [Concomitant]
     Active Substance: CEFAZOLIN
     Dosage: EVERY 8 HOURS FOR THREE DAYS
     Route: 065
     Dates: start: 20170306
  11. CICLOSPORIN [Concomitant]
     Active Substance: CYCLOSPORINE
     Indication: PSORIASIS
     Route: 048
     Dates: start: 20150522
  12. CELEBREX [Concomitant]
     Active Substance: CELECOXIB
     Route: 048
     Dates: start: 20170302
  13. ARAX [Concomitant]
     Route: 065
     Dates: start: 20170308
  14. SULFASALAZINE. [Concomitant]
     Active Substance: SULFASALAZINE
     Route: 065
     Dates: start: 20170304
  15. NALBUPHINE [Concomitant]
     Active Substance: NALBUPHINE
     Dosage: EVERY 8 HOURS WEN NECECESSARY
     Route: 065
     Dates: start: 20170303

REACTIONS (6)
  - Erythema [Not Recovered/Not Resolved]
  - Pain [Recovering/Resolving]
  - Swelling [Not Recovered/Not Resolved]
  - Arthralgia [Recovered/Resolved]
  - Psoriasis [Recovering/Resolving]
  - Viral upper respiratory tract infection [Recovered/Resolved]

NARRATIVE: CASE EVENT DATE: 20160824
